FAERS Safety Report 9820096 (Version 1)
Quarter: 2014Q1

REPORT INFORMATION
  Report Type: Spontaneous
  Country: US (occurrence: None)
  Receive Date: 20140113
  Receipt Date: 20140113
  Transmission Date: 20141002
  Serious: Yes (Disabling)
  Sender: FDA-Public Use
  Company Number: None

PATIENT
  Age: 61 Year
  Sex: Female

DRUGS (1)
  1. CIPRO [Suspect]
     Indication: NAIL INFECTION
     Dosage: TAKEN BY MOUTH
     Route: 048
     Dates: start: 20140107, end: 20140109

REACTIONS (6)
  - Neuropathy peripheral [None]
  - Dizziness [None]
  - Balance disorder [None]
  - Sensory disturbance [None]
  - Asthenia [None]
  - Condition aggravated [None]
